FAERS Safety Report 11822563 (Version 1)
Quarter: 2015Q4

REPORT INFORMATION
  Report Type: Spontaneous
  Country: US (occurrence: US)
  Receive Date: 20151210
  Receipt Date: 20151210
  Transmission Date: 20160305
  Serious: Yes (Other)
  Sender: FDA-Public Use
  Company Number: US-AMGEN-USASP2015129305

PATIENT
  Age: 51 Year
  Sex: Female

DRUGS (1)
  1. ENBREL [Suspect]
     Active Substance: ETANERCEPT
     Indication: RHEUMATOID ARTHRITIS
     Dosage: UNK UNK, UNK
     Route: 065
     Dates: start: 2009

REACTIONS (19)
  - Hand deformity [Unknown]
  - Head injury [Unknown]
  - Disability [Unknown]
  - Fall [Unknown]
  - Joint injury [Unknown]
  - Facial bones fracture [Unknown]
  - Loss of consciousness [Unknown]
  - Vertigo [Unknown]
  - Wheelchair user [Unknown]
  - Amnesia [Unknown]
  - Spinal fracture [Unknown]
  - Eye injury [Unknown]
  - Pain [Unknown]
  - Pain in extremity [Unknown]
  - Contusion [Unknown]
  - Toe operation [Unknown]
  - Concussion [Unknown]
  - Multiple injuries [Unknown]
  - Forearm fracture [Unknown]

NARRATIVE: CASE EVENT DATE: 2009
